FAERS Safety Report 11445071 (Version 5)
Quarter: 2017Q1

REPORT INFORMATION
  Report Type: Spontaneous
  Country: DK (occurrence: DK)
  Receive Date: 20150902
  Receipt Date: 20170222
  Transmission Date: 20170428
  Serious: Yes (Other)
  Sender: FDA-Public Use
  Company Number: DK-JNJFOC-20150822477

PATIENT
  Age: 54 Year
  Sex: Female
  Weight: 110 kg

DRUGS (3)
  1. XEPLION [Suspect]
     Active Substance: PALIPERIDONE PALMITATE
     Indication: PSYCHOTIC DISORDER
     Route: 030
     Dates: start: 20140313
  2. RISPERIDONE. [Concomitant]
     Active Substance: RISPERIDONE
     Indication: PSYCHOTIC DISORDER
     Route: 065
     Dates: start: 20131025, end: 20140315
  3. XEPLION [Suspect]
     Active Substance: PALIPERIDONE PALMITATE
     Indication: PSYCHOTIC DISORDER
     Route: 030
     Dates: start: 20140207, end: 20140313

REACTIONS (14)
  - Dizziness [Recovered/Resolved]
  - Nausea [Recovered/Resolved]
  - Pruritus generalised [Recovered/Resolved]
  - Painful respiration [Recovered/Resolved]
  - Muscle twitching [Recovered/Resolved]
  - Dysgeusia [Recovered/Resolved]
  - Headache [Recovered/Resolved]
  - Balance disorder [Recovered/Resolved]
  - Vomiting [Recovered/Resolved]
  - Angina pectoris [Recovered/Resolved]
  - Paraesthesia oral [Recovered/Resolved]
  - Visual impairment [Recovered/Resolved]
  - Drooling [Recovered/Resolved]
  - Back pain [Recovered/Resolved]

NARRATIVE: CASE EVENT DATE: 20140207
